FAERS Safety Report 5735878-2 (Version None)
Quarter: 2008Q2

REPORT INFORMATION
  Report Type: 
  Country: None (occurrence: None)
  Receive Date: 20080509
  Receipt Date: 20080509
  Transmission Date: 20081010
  Serious: Yes (Other)
  Sender: FDA-Public Use
  Company Number: None

PATIENT
  Sex: Male
  Weight: 74.8435 kg

DRUGS (4)
  1. CREST PROHEALTH MOUTHWASH PROCTOR + GAMBLE [Suspect]
     Indication: DYSGEUSIA
     Dosage: 1-2 0Z TWICE DAILY
     Dates: start: 20080101, end: 20080508
  2. CREST PROHEALTH MOUTHWASH PROCTOR + GAMBLE [Suspect]
     Indication: PAROSMIA
     Dosage: 1-2 0Z TWICE DAILY
     Dates: start: 20080101, end: 20080508
  3. CREST PROHEALTH MOUTHWASH PROCTOR + GAMBLE [Suspect]
     Indication: TONGUE DISCOLOURATION
     Dosage: 1-2 0Z TWICE DAILY
     Dates: start: 20080101, end: 20080508
  4. CREST PROHEALTH MOUTHWASH PROCTOR + GAMBLE [Suspect]
     Indication: TOOTH DISCOLOURATION
     Dosage: 1-2 0Z TWICE DAILY
     Dates: start: 20080101, end: 20080508

REACTIONS (7)
  - DYSGEUSIA [None]
  - GINGIVAL BLEEDING [None]
  - GINGIVAL PAIN [None]
  - NAUSEA [None]
  - PAROSMIA [None]
  - TONGUE DISCOLOURATION [None]
  - TOOTH DISCOLOURATION [None]
